FAERS Safety Report 12139099 (Version 1)
Quarter: 2016Q1

REPORT INFORMATION
  Report Type: Spontaneous
  Country: US (occurrence: US)
  Receive Date: 20160302
  Receipt Date: 20160302
  Transmission Date: 20160526
  Serious: Yes (Other)
  Sender: FDA-Public Use
  Company Number: US-TEIKOKU PHARMA USA-TPU2016-00107

PATIENT
  Age: 53 Year
  Sex: Female
  Weight: 90.35 kg

DRUGS (9)
  1. LIDODERM [Suspect]
     Active Substance: LIDOCAINE
     Indication: LUMBAR SPINAL STENOSIS
     Dosage: 2 PATCHES EVERY 24 HRS FOR PAIN AND ROTATED THE PATCHES TO AREAS IN CERVICAL AREA, SHOULDER, LOWER B
     Route: 061
     Dates: start: 2015, end: 2015
  2. LIDODERM [Suspect]
     Active Substance: LIDOCAINE
     Indication: NECK PAIN
  3. LIDODERM [Suspect]
     Active Substance: LIDOCAINE
     Indication: FIBROMYALGIA
  4. LIDODERM [Suspect]
     Active Substance: LIDOCAINE
     Indication: MUSCULOSKELETAL PAIN
  5. LIDODERM [Suspect]
     Active Substance: LIDOCAINE
     Indication: ARTHRALGIA
  6. LIDODERM [Suspect]
     Active Substance: LIDOCAINE
     Indication: PAIN
  7. LIDODERM [Suspect]
     Active Substance: LIDOCAINE
     Indication: BACK PAIN
  8. LIDODERM [Suspect]
     Active Substance: LIDOCAINE
     Indication: ARTHRITIS
     Dosage: 2 PATCHES EVERY 24 HRS FOR PAIN AND ROTATED THE PATCHES TO AREAS IN CERVICAL AREA, SHOULDER, LOWER B
     Route: 061
     Dates: start: 200301, end: 201505
  9. LIDODERM [Suspect]
     Active Substance: LIDOCAINE
     Indication: BONE PAIN

REACTIONS (4)
  - Intervertebral disc degeneration [Not Recovered/Not Resolved]
  - Anaemia [Not Recovered/Not Resolved]
  - Incorrect drug administration duration [Recovered/Resolved]
  - Expired product administered [Recovered/Resolved]

NARRATIVE: CASE EVENT DATE: 200301
